FAERS Safety Report 7971745-1 (Version None)
Quarter: 2011Q4

REPORT INFORMATION
  Report Type: 
  Country: None (occurrence: None)
  Receive Date: 20111212
  Receipt Date: 20110428
  Transmission Date: 20120403
  Serious: No
  Sender: FDA-Public Use
  Company Number: US-MUTUAL PHARMACEUTICAL COMPANY, INC.-ALBT20110001

PATIENT
  Age: 50 Year
  Sex: Female

DRUGS (1)
  1. ALBUTEROL [Suspect]
     Indication: PRODUCT USED FOR UNKNOWN INDICATION
     Route: 065

REACTIONS (2)
  - PRURITUS ALLERGIC [None]
  - DERMATITIS ALLERGIC [None]
